FAERS Safety Report 6046246-0 (Version None)
Quarter: 2009Q1

REPORT INFORMATION
  Report Type: 
  Country: None (occurrence: None)
  Receive Date: 20090118
  Receipt Date: 20090118
  Transmission Date: 20090719
  Serious: Yes (Other)
  Sender: FDA-Public Use
  Company Number: None

PATIENT
  Age: 44 Year
  Sex: Female
  Weight: 62.5964 kg

DRUGS (2)
  1. XOPENEX [Suspect]
     Indication: BRONCHIAL HYPERREACTIVITY
     Dosage: .63 BID INHAL
     Route: 055
     Dates: start: 20080107, end: 20080112
  2. XOPENEX [Suspect]
     Indication: TRACHEOBRONCHITIS
     Dosage: .63 BID INHAL
     Route: 055
     Dates: start: 20080107, end: 20080112

REACTIONS (5)
  - CHEST PAIN [None]
  - DYSPHAGIA [None]
  - ERUCTATION [None]
  - GASTROOESOPHAGEAL REFLUX DISEASE [None]
  - SENSATION OF FOREIGN BODY [None]
